FAERS Safety Report 22981952 (Version 2)
Quarter: 2023Q4

REPORT INFORMATION
  Report Type: Report from Study
  Country: GB (occurrence: GB)
  Receive Date: 20230926
  Receipt Date: 20231129
  Transmission Date: 20240110
  Serious: Yes (Hospitalization)
  Sender: FDA-Public Use
  Company Number: GB-ABBVIE-5417553

PATIENT
  Age: 79 Year
  Sex: Female

DRUGS (4)
  1. CARBIDOPA\LEVODOPA [Suspect]
     Active Substance: CARBIDOPA\LEVODOPA
     Indication: Parkinson^s disease
     Dosage: 20MGS/5MGS?20MGS/5MGS MD:7.2 MLS, CR: 4.4 MLS/HR, ED:2.0 MLS
     Route: 050
  2. CARBIDOPA\LEVODOPA [Suspect]
     Active Substance: CARBIDOPA\LEVODOPA
  3. CARBIDOPA\LEVODOPA [Concomitant]
     Active Substance: CARBIDOPA\LEVODOPA
     Indication: Product used for unknown indication
     Dosage: 25/100MGS?FREQUENCY TEXT: 2 TABS AT 22.00 PM
  4. CLOZAPINE [Concomitant]
     Active Substance: CLOZAPINE
     Indication: Product used for unknown indication
     Dosage: FREQUENCY TEXT: AT 22.00 PM?62.5 MG

REACTIONS (9)
  - Fall [Not Recovered/Not Resolved]
  - Head injury [Not Recovered/Not Resolved]
  - Stoma site discharge [Unknown]
  - Device dislocation [Not Recovered/Not Resolved]
  - Freezing phenomenon [Unknown]
  - Depression [Not Recovered/Not Resolved]
  - Dyskinesia [Unknown]
  - Muscle rigidity [Unknown]
  - Stoma site hypergranulation [Unknown]

NARRATIVE: CASE EVENT DATE: 20230919
